FAERS Safety Report 9380776 (Version 11)
Quarter: 2014Q2

REPORT INFORMATION
  Report Type: Report from Study
  Country: US (occurrence: US)
  Receive Date: 20130702
  Receipt Date: 20140430
  Transmission Date: 20141212
  Serious: Yes (Hospitalization)
  Sender: FDA-Public Use
  Company Number: US-PFIZER INC-2013190204

PATIENT
  Age: 60 Year
  Sex: Male
  Weight: 110 kg

DRUGS (3)
  1. TOFACITINIB CITRATE [Suspect]
     Indication: PSORIASIS
     Dosage: 10 MG, 2X/DAY
     Route: 048
     Dates: start: 20120605, end: 20130529
  2. LOPRESSOR [Concomitant]
     Indication: HYPERTENSION
     Dosage: UNK
  3. IBUPROFEN [Concomitant]
     Indication: PSORIATIC ARTHROPATHY
     Dosage: UNK
     Dates: start: 20110526

REACTIONS (2)
  - Arthritis [Recovering/Resolving]
  - Cellulitis [Recovered/Resolved]
